FAERS Safety Report 20893948 (Version 1)
Quarter: 2022Q2

REPORT INFORMATION
  Report Type: Spontaneous
  Country: US (occurrence: None)
  Receive Date: 20220528
  Receipt Date: 20220528
  Transmission Date: 20220721
  Serious: Yes (Other)
  Sender: FDA-Public Use
  Company Number: None

PATIENT
  Age: 71 Year
  Sex: Male
  Weight: 101.25 kg

DRUGS (5)
  1. PAXLOVID [Suspect]
     Active Substance: NIRMATRELVIR\RITONAVIR
     Indication: COVID-19
     Dosage: FREQUENCY : TWICE A DAY;?
     Route: 048
     Dates: start: 20220524
  2. Sindenafil [Concomitant]
     Dates: start: 20050101
  3. IBUPROFEN [Concomitant]
     Active Substance: IBUPROFEN
     Dates: start: 20050101
  4. VITAMIN D [Concomitant]
     Active Substance: VITAMIN D NOS
     Dates: start: 20050101
  5. ALBUTEROL [Concomitant]
     Active Substance: ALBUTEROL
     Dates: start: 20050101

REACTIONS (1)
  - Eye swelling [None]

NARRATIVE: CASE EVENT DATE: 20220527
